FAERS Safety Report 24731262 (Version 1)
Quarter: 2024Q4

REPORT INFORMATION
  Report Type: Spontaneous
  Country: US (occurrence: US)
  Receive Date: 20241213
  Receipt Date: 20241213
  Transmission Date: 20250114
  Serious: No
  Sender: VIVUS
  Company Number: US-VIVUS LLC-2024V1000588

PATIENT
  Sex: Female

DRUGS (1)
  1. PANCREAZE [Suspect]
     Active Substance: PANCRELIPASE AMYLASE\PANCRELIPASE LIPASE\PANCRELIPASE PROTEASE
     Indication: Pancreatic failure
     Dosage: 10,500/35,500/ 61,500 USP UNITS
     Route: 048

REACTIONS (4)
  - Malaise [Unknown]
  - Feeling jittery [Unknown]
  - Nausea [Unknown]
  - Constipation [Unknown]
